FAERS Safety Report 25231853 (Version 1)
Quarter: 2025Q2

REPORT INFORMATION
  Report Type: Spontaneous
  Country: PT (occurrence: PT)
  Receive Date: 20250423
  Receipt Date: 20250423
  Transmission Date: 20250717
  Serious: Yes (Other)
  Sender: MYLAN
  Company Number: None

PATIENT
  Age: 70 Year
  Sex: Female
  Weight: 81.5 kg

DRUGS (24)
  1. ATORVASTATIN [Suspect]
     Active Substance: ATORVASTATIN
     Indication: Dyslipidaemia
     Dosage: 20 MILLIGRAM, QD (20 MG/DAY)
     Dates: start: 20250213, end: 20250214
  2. ATORVASTATIN [Suspect]
     Active Substance: ATORVASTATIN
     Dosage: 20 MILLIGRAM, QD (20 MG/DAY)
     Route: 048
     Dates: start: 20250213, end: 20250214
  3. ATORVASTATIN [Suspect]
     Active Substance: ATORVASTATIN
     Dosage: 20 MILLIGRAM, QD (20 MG/DAY)
     Route: 048
     Dates: start: 20250213, end: 20250214
  4. ATORVASTATIN [Suspect]
     Active Substance: ATORVASTATIN
     Dosage: 20 MILLIGRAM, QD (20 MG/DAY)
     Dates: start: 20250213, end: 20250214
  5. ESOMEPRAZOLE [Concomitant]
     Active Substance: ESOMEPRAZOLE
  6. ESOMEPRAZOLE [Concomitant]
     Active Substance: ESOMEPRAZOLE
     Route: 048
  7. ESOMEPRAZOLE [Concomitant]
     Active Substance: ESOMEPRAZOLE
     Route: 048
  8. ESOMEPRAZOLE [Concomitant]
     Active Substance: ESOMEPRAZOLE
  9. TROMALYT [Concomitant]
     Active Substance: ASPIRIN
  10. TROMALYT [Concomitant]
     Active Substance: ASPIRIN
     Route: 048
  11. TROMALYT [Concomitant]
     Active Substance: ASPIRIN
     Route: 048
  12. TROMALYT [Concomitant]
     Active Substance: ASPIRIN
  13. SIMVASTATIN [Concomitant]
     Active Substance: SIMVASTATIN
  14. SIMVASTATIN [Concomitant]
     Active Substance: SIMVASTATIN
     Route: 048
  15. SIMVASTATIN [Concomitant]
     Active Substance: SIMVASTATIN
     Route: 048
  16. SIMVASTATIN [Concomitant]
     Active Substance: SIMVASTATIN
  17. ESCITALOPRAM [Concomitant]
     Active Substance: ESCITALOPRAM OXALATE
  18. ESCITALOPRAM [Concomitant]
     Active Substance: ESCITALOPRAM OXALATE
     Route: 048
  19. ESCITALOPRAM [Concomitant]
     Active Substance: ESCITALOPRAM OXALATE
     Route: 048
  20. ESCITALOPRAM [Concomitant]
     Active Substance: ESCITALOPRAM OXALATE
  21. PERINDOPRIL [Concomitant]
     Active Substance: PERINDOPRIL
  22. PERINDOPRIL [Concomitant]
     Active Substance: PERINDOPRIL
     Route: 048
  23. PERINDOPRIL [Concomitant]
     Active Substance: PERINDOPRIL
     Route: 048
  24. PERINDOPRIL [Concomitant]
     Active Substance: PERINDOPRIL

REACTIONS (3)
  - Dizziness [Recovered/Resolved]
  - Nausea [Recovered/Resolved]
  - Vertigo [Recovered/Resolved]

NARRATIVE: CASE EVENT DATE: 20250214
